FAERS Safety Report 9570273 (Version 1)
Quarter: 2013Q3

REPORT INFORMATION
  Report Type: Spontaneous
  Country: US (occurrence: US)
  Receive Date: 20130930
  Receipt Date: 20130930
  Transmission Date: 20140515
  Serious: No
  Sender: FDA-Public Use
  Company Number: US-AMGEN-USASP2013063866

PATIENT
  Age: 33 Year
  Sex: Female
  Weight: 63.49 kg

DRUGS (3)
  1. ENBREL [Suspect]
     Indication: PRODUCT USED FOR UNKNOWN INDICATION
     Dosage: 50 MG, 2 TIMES/WK FOR THREE MONTHS
     Route: 058
  2. HUMIRA [Concomitant]
     Dosage: UNK
  3. ADVAIR [Concomitant]
     Dosage: 100/50

REACTIONS (1)
  - Therapeutic response decreased [Unknown]
